FAERS Safety Report 9306705 (Version 3)
Quarter: 2014Q1

REPORT INFORMATION
  Report Type: Report from Study
  Country: US (occurrence: US)
  Receive Date: 20130523
  Receipt Date: 20140307
  Transmission Date: 20141002
  Serious: Yes (Hospitalization, Other)
  Sender: FDA-Public Use
  Company Number: US-ALEXION-A201300952

PATIENT
  Age: 45 Year
  Sex: Female
  Weight: 79 kg

DRUGS (8)
  1. SOLIRIS [Suspect]
     Indication: PAROXYSMAL NOCTURNAL HAEMOGLOBINURIA
     Dosage: 600 MG, QW
     Route: 042
     Dates: start: 20070905, end: 2007
  2. SOLIRIS [Suspect]
     Dosage: 900 MG, Q2W
     Route: 042
     Dates: start: 20070905
  3. LEXAPRO [Concomitant]
     Indication: DEPRESSION
     Dosage: 10 MG, QD
     Route: 048
  4. AMBIEN [Concomitant]
     Indication: INSOMNIA
     Dosage: UNK
     Dates: start: 2012
  5. XANAX [Concomitant]
     Indication: ANXIETY
     Dosage: UNK
     Dates: start: 2012
  6. TAMOXIFEN [Concomitant]
     Indication: BREAST CANCER
     Dosage: UNK
     Dates: start: 200901
  7. VICODIN [Concomitant]
     Indication: PAIN
     Dosage: UNK, PRN
  8. TYLENOL [Concomitant]
     Indication: PAIN
     Dosage: UNK, PRN

REACTIONS (3)
  - Biliary colic [Recovered/Resolved]
  - Haemoglobin decreased [Recovered/Resolved]
  - Influenza [Recovered/Resolved]
